FAERS Safety Report 7952039-7 (Version None)
Quarter: 2011Q4

REPORT INFORMATION
  Report Type: 
  Country: None (occurrence: None)
  Receive Date: 20111201
  Receipt Date: 20111116
  Transmission Date: 20120403
  Serious: Yes (Death)
  Sender: FDA-Public Use
  Company Number: IL-WATSON-2011-20455

PATIENT
  Age: 51 Year
  Sex: Female

DRUGS (14)
  1. GEMCITABINE [Suspect]
     Indication: BREAST CANCER
  2. PACLITAXEL [Suspect]
     Indication: BREAST CANCER
  3. MEGESTROL ACETATE [Suspect]
     Indication: BREAST CANCER
  4. VINORELBINE [Suspect]
     Indication: BREAST CANCER
  5. CAPECITABINE [Suspect]
     Indication: BREAST CANCER
  6. MITOXANTRONE [Suspect]
     Indication: BREAST CANCER
  7. CYCLOPHOSPHAMIDE [Suspect]
     Indication: BREAST CANCER
  8. DOXORUBICIN HCL [Suspect]
     Indication: BREAST CANCER
  9. METHOTREXATE [Suspect]
     Indication: BREAST CANCER
  10. EXEMESTANE [Suspect]
     Indication: BREAST CANCER
  11. TAMOXIFEN CITRATE [Suspect]
     Indication: BREAST CANCER
  12. FULVESTRANT [Suspect]
     Indication: BREAST CANCER
  13. MITOMYCIN [Suspect]
     Indication: BREAST CANCER
  14. LETROZOLE [Suspect]
     Indication: BREAST CANCER

REACTIONS (2)
  - LIVER SCAN ABNORMAL [None]
  - HEPATIC FAILURE [None]
